FAERS Safety Report 15417381 (Version 1)
Quarter: 2018Q3

REPORT INFORMATION
  Report Type: Spontaneous
  Country: US (occurrence: US)
  Receive Date: 20180924
  Receipt Date: 20180924
  Transmission Date: 20181010
  Serious: Yes (Hospitalization, Other)
  Sender: FDA-Public Use
  Company Number: US-ACCORD-072634

PATIENT
  Age: 47 Year
  Sex: Female

DRUGS (2)
  1. METHOTREXATE. [Suspect]
     Active Substance: METHOTREXATE
     Indication: HISTIOCYTIC SARCOMA
     Dosage: HIGH DOSE INTRAVENOUS
     Route: 042
  2. CLADRIBINE. [Suspect]
     Active Substance: CLADRIBINE
     Indication: MALIGNANT PLEURAL EFFUSION

REACTIONS (3)
  - Meningitis [Recovered/Resolved]
  - Malignant pleural effusion [Unknown]
  - Drug intolerance [Unknown]
